FAERS Safety Report 14424515 (Version 1)
Quarter: 2018Q1

REPORT INFORMATION
  Report Type: Report from Study
  Country: CO (occurrence: CO)
  Receive Date: 20180123
  Receipt Date: 20180123
  Transmission Date: 20180509
  Serious: Yes (Other)
  Sender: FDA-Public Use
  Company Number: CO-ASTELLAS-2018US004169

PATIENT
  Age: 48 Year
  Sex: Male

DRUGS (6)
  1. AMLODIPINE [Concomitant]
     Active Substance: AMLODIPINE BESYLATE
     Indication: HYPERTENSION
     Dosage: 5 MG, TWICE DAILY (EVERY 12 HRS)
     Route: 048
     Dates: start: 20171025
  2. METOPROLOL. [Concomitant]
     Active Substance: METOPROLOL
     Indication: HYPERTENSION
     Dosage: 50 MG, TWICE DAILY (EVERY 12 HRS)
     Route: 048
     Dates: start: 20171025
  3. TACROLIMUS. [Suspect]
     Active Substance: TACROLIMUS
     Indication: RENAL TRANSPLANT
     Dosage: 7 MG (1 CAPSULE OF 5 MG AND 2 CAPSULES OF 1MG), ONCE DAILY
     Route: 048
     Dates: start: 20171020
  4. TACROLIMUS. [Suspect]
     Active Substance: TACROLIMUS
     Indication: RENAL TRANSPLANT
     Dosage: 7 MG (1 CAPSULE OF 5 MG AND 2 CAPSULES OF 1MG), ONCE DAILY
     Route: 048
     Dates: start: 20171020
  5. MYCOPHENOLATE [Concomitant]
     Active Substance: MYCOPHENOLIC ACID
     Indication: RENAL TRANSPLANT
     Dosage: 360 UNIT UNK, TWICE DAILY (EVERY 12 HRS)
     Route: 048
     Dates: start: 20171025
  6. PREDNISOLONE. [Concomitant]
     Active Substance: PREDNISOLONE
     Indication: PRODUCT USED FOR UNKNOWN INDICATION
     Route: 048

REACTIONS (1)
  - Urine cytology abnormal [Recovered/Resolved]

NARRATIVE: CASE EVENT DATE: 20171204
